FAERS Safety Report 6279423-4 (Version None)
Quarter: 2009Q3

REPORT INFORMATION
  Report Type: 
  Country: None (occurrence: None)
  Receive Date: 20090721
  Receipt Date: 20090710
  Transmission Date: 20100115
  Serious: Yes (Other)
  Sender: FDA-Public Use
  Company Number: 230031M09FRA

PATIENT
  Age: 37 Year
  Sex: Female
  Weight: 53 kg

DRUGS (6)
  1. REBIF [Suspect]
     Indication: MULTIPLE SCLEROSIS
     Dosage: 44 MCG, 3 IN 1 WEEKS, SUBCUTANEOUS
     Route: 058
     Dates: start: 20060906, end: 20090701
  2. LODOZ (GALENIC /BISOPROLOL/HYDROCHLOROTHIAZIDE/) [Concomitant]
  3. EXFORGE [Concomitant]
  4. VALSARTAN [Concomitant]
  5. ACETAMINOPHEN [Concomitant]
  6. ATARAX (HYDROXYZINE /00058401/) [Concomitant]

REACTIONS (10)
  - ANAEMIA [None]
  - DIALYSIS [None]
  - EPISTAXIS [None]
  - INJECTION SITE HAEMATOMA [None]
  - INJECTION SITE HAEMORRHAGE [None]
  - NEPHROANGIOSCLEROSIS [None]
  - PLATELET FUNCTION TEST ABNORMAL [None]
  - POST PROCEDURAL HAEMATOMA [None]
  - RENAL FAILURE CHRONIC [None]
  - THROMBIN TIME PROLONGED [None]
